FAERS Safety Report 13495349 (Version 1)
Quarter: 2017Q2

REPORT INFORMATION
  Report Type: Spontaneous
  Country: US (occurrence: US)
  Receive Date: 20170428
  Receipt Date: 20170428
  Transmission Date: 20170830
  Serious: No
  Sender: FDA-Public Use
  Company Number: US-BAYER-2017-081276

PATIENT
  Sex: Male

DRUGS (4)
  1. CLARITIN [Suspect]
     Active Substance: LORATADINE
     Indication: PRURITUS
  2. CLARITIN [Suspect]
     Active Substance: LORATADINE
     Indication: SWELLING FACE
  3. CLARITIN [Suspect]
     Active Substance: LORATADINE
     Indication: PERIPHERAL SWELLING
  4. CLARITIN [Suspect]
     Active Substance: LORATADINE
     Indication: ALLERGY TO ARTHROPOD BITE

REACTIONS (2)
  - Therapeutic response unexpected [Unknown]
  - Product use in unapproved indication [Unknown]
